FAERS Safety Report 7106105-9 (Version None)
Quarter: 2010Q4

REPORT INFORMATION
  Report Type: 
  Country: None (occurrence: None)
  Receive Date: 20101116
  Receipt Date: 20101105
  Transmission Date: 20110411
  Serious: Yes (Hospitalization, Other)
  Sender: FDA-Public Use
  Company Number: FR-BAXTER-2010BH027015

PATIENT
  Age: 78 Year
  Sex: Female

DRUGS (3)
  1. DIANEAL [Suspect]
     Indication: PERITONEAL DIALYSIS
     Route: 033
     Dates: start: 20100701, end: 20100801
  2. DIANEAL [Suspect]
     Route: 033
     Dates: start: 20100901, end: 20101001
  3. EXTRANEAL [Suspect]
     Indication: PERITONEAL DIALYSIS
     Route: 033
     Dates: start: 20101001, end: 20101026

REACTIONS (6)
  - DEVICE LEAKAGE [None]
  - DIAPHRAGMATIC DISORDER [None]
  - FLUID RETENTION [None]
  - MUSCULOSKELETAL PAIN [None]
  - PLEURAL EFFUSION [None]
  - SODIUM RETENTION [None]
